FAERS Safety Report 8409507-3 (Version None)
Quarter: 2012Q2

REPORT INFORMATION
  Report Type: 
  Country: None (occurrence: None)
  Receive Date: 20120531
  Receipt Date: 20120531
  Transmission Date: 20120825
  Serious: Yes (Hospitalization)
  Sender: FDA-Public Use
  Company Number: None

PATIENT
  Age: 43 Year
  Sex: Male
  Weight: 86.4 kg

DRUGS (2)
  1. OXYCODONE HCL [Suspect]
     Dosage: 5 MG QID PO
     Route: 048
     Dates: start: 20120514, end: 20120523
  2. DICLOFENAC SODIUM [Suspect]
     Dosage: 50 MG BID PO
     Route: 048
     Dates: start: 20120512, end: 20120523

REACTIONS (5)
  - RENAL FAILURE ACUTE [None]
  - MENTAL STATUS CHANGES [None]
  - CONFUSIONAL STATE [None]
  - SEDATION [None]
  - SOMNOLENCE [None]
